FAERS Safety Report 25090332 (Version 1)
Quarter: 2025Q1

REPORT INFORMATION
  Report Type: Spontaneous
  Country: ES (occurrence: ES)
  Receive Date: 20250318
  Receipt Date: 20250318
  Transmission Date: 20250409
  Serious: Yes (Life-Threatening, Other)
  Sender: PFIZER
  Company Number: ES-PFIZER INC-PV202500030882

PATIENT
  Age: 54 Year
  Sex: Female

DRUGS (16)
  1. DILTIAZEM HYDROCHLORIDE [Suspect]
     Active Substance: DILTIAZEM HYDROCHLORIDE
     Indication: Arteriospasm coronary
  2. DOBUTAMINE HYDROCHLORIDE [Suspect]
     Active Substance: DOBUTAMINE HYDROCHLORIDE
     Indication: Haemodynamic instability
  3. DOBUTAMINE HYDROCHLORIDE [Suspect]
     Active Substance: DOBUTAMINE HYDROCHLORIDE
     Indication: Arteriospasm coronary
  4. ISOSORBIDE MONONITRATE [Suspect]
     Active Substance: ISOSORBIDE MONONITRATE
     Indication: Arteriospasm coronary
  5. NITROGLYCERIN [Suspect]
     Active Substance: NITROGLYCERIN
     Indication: Arteriospasm coronary
  6. NITROGLYCERIN [Suspect]
     Active Substance: NITROGLYCERIN
  7. NITROGLYCERIN [Suspect]
     Active Substance: NITROGLYCERIN
     Route: 042
  8. MOLSIDOMINE [Suspect]
     Active Substance: MOLSIDOMINE
     Indication: Arteriospasm coronary
  9. RANOLAZINE [Suspect]
     Active Substance: RANOLAZINE
     Indication: Arteriospasm coronary
  10. VERAPAMIL [Suspect]
     Active Substance: VERAPAMIL HYDROCHLORIDE
     Indication: Arteriospasm coronary
     Route: 042
  11. NIMODIPINE [Suspect]
     Active Substance: NIMODIPINE
     Indication: Arteriospasm coronary
     Route: 042
  12. NITROPRUSSIDE [Suspect]
     Active Substance: NITROPRUSSIDE
     Indication: Arteriospasm coronary
     Route: 042
  13. NICORANDIL [Suspect]
     Active Substance: NICORANDIL
     Indication: Arteriospasm coronary
  14. FLUVASTATIN [Suspect]
     Active Substance: FLUVASTATIN SODIUM
     Indication: Arteriospasm coronary
  15. MEROPENEM [Concomitant]
     Active Substance: MEROPENEM
     Indication: Pneumonia aspiration
  16. DAPTOMYCIN [Concomitant]
     Active Substance: DAPTOMYCIN
     Indication: Pneumonia aspiration

REACTIONS (1)
  - Drug ineffective [Unknown]
